FAERS Safety Report 6198788-5 (Version None)
Quarter: 2009Q2

REPORT INFORMATION
  Report Type: 
  Country: None (occurrence: None)
  Receive Date: 20090521
  Receipt Date: 20090302
  Transmission Date: 20091009
  Serious: Yes (Death)
  Sender: FDA-Public Use
  Company Number: RU-MERCK-0903RUS00001

PATIENT
  Age: 45 Year
  Sex: Female

DRUGS (3)
  1. INVANZ [Suspect]
     Indication: PNEUMONIA
     Route: 042
  2. AMBROX [Concomitant]
     Indication: PNEUMONIA
     Route: 065
  3. SUMAMED [Concomitant]
     Indication: PNEUMONIA
     Route: 041

REACTIONS (1)
  - PNEUMONIA [None]
